FAERS Safety Report 4928349-4 (Version None)
Quarter: 2006Q1

REPORT INFORMATION
  Report Type: 
  Country: None (occurrence: None)
  Receive Date: 20060228
  Receipt Date: 20051011
  Transmission Date: 20060701
  Serious: Yes (Hospitalization)
  Sender: FDA-Public Use
  Company Number: US-MERCK-0510USA06634

PATIENT
  Age: 49 Year
  Sex: Female
  Weight: 51 kg

DRUGS (1)
  1. VIOXX [Suspect]
     Indication: ARTHRITIS
     Route: 048
     Dates: start: 20011101, end: 20020712

REACTIONS (14)
  - ANOREXIA [None]
  - BRONCHITIS [None]
  - CATARACT [None]
  - CEREBROVASCULAR ACCIDENT [None]
  - DEPRESSION [None]
  - GASTRIC HAEMORRHAGE [None]
  - GASTROINTESTINAL DYSPLASIA [None]
  - HYPERTENSION [None]
  - IRON DEFICIENCY ANAEMIA [None]
  - MENOPAUSAL SYMPTOMS [None]
  - PELVIC PAIN [None]
  - SHOULDER PAIN [None]
  - SINUSITIS [None]
  - TRANSIENT ISCHAEMIC ATTACK [None]
